FAERS Safety Report 4371267-3 (Version None)
Quarter: 2004Q2

REPORT INFORMATION
  Report Type: 
  Country: None (occurrence: None)
  Receive Date: 20040604
  Receipt Date: 20040527
  Transmission Date: 20050107
  Serious: Yes (Hospitalization, Other)
  Sender: FDA-Public Use
  Company Number: US-MERCK-0405USA02047

PATIENT
  Age: 78 Year
  Sex: Male

DRUGS (4)
  1. [THERAPY UNSPECIFIED] [Concomitant]
     Indication: ANTICOAGULANT THERAPY
     Route: 065
  2. DECADRON [Suspect]
     Route: 048
     Dates: end: 20040401
  3. DECADRON [Suspect]
     Route: 048
     Dates: start: 20040401
  4. THALOMID [Suspect]
     Indication: MULTIPLE MYELOMA
     Route: 048
     Dates: start: 20040206, end: 20040401

REACTIONS (8)
  - ACCIDENTAL OVERDOSE [None]
  - ALVEOLITIS [None]
  - BRONCHIECTASIS [None]
  - CARDIAC FAILURE CONGESTIVE [None]
  - DRUG HYPERSENSITIVITY [None]
  - FLUID OVERLOAD [None]
  - HYPOTENSION [None]
  - PNEUMONIA ASPIRATION [None]
